FAERS Safety Report 8558160-7 (Version None)
Quarter: 2012Q3

REPORT INFORMATION
  Report Type: 
  Country: None (occurrence: None)
  Receive Date: 20120801
  Receipt Date: 20120731
  Transmission Date: 20120928
  Serious: No
  Sender: FDA-Public Use
  Company Number: US-TEVA-351424USA

PATIENT
  Sex: Female
  Weight: 71.732 kg

DRUGS (1)
  1. PLAN B ONE-STEP [Suspect]
     Indication: ABORTION INDUCED
     Dosage: 1.5 MILLIGRAM;
     Route: 048
     Dates: start: 20120728, end: 20120728

REACTIONS (3)
  - MATERNAL EXPOSURE DURING PREGNANCY [None]
  - PREGNANCY [None]
  - OFF LABEL USE [None]
